FAERS Safety Report 21989617 (Version 1)
Quarter: 2023Q1

REPORT INFORMATION
  Report Type: Spontaneous
  Country: US (occurrence: None)
  Receive Date: 20230214
  Receipt Date: 20230214
  Transmission Date: 20230417
  Serious: Yes (Hospitalization)
  Sender: FDA-Public Use
  Company Number: US-ROCHE-3284322

PATIENT
  Age: 65 Year
  Sex: Male
  Weight: 98.972 kg

DRUGS (5)
  1. RITUXAN [Suspect]
     Active Substance: RITUXIMAB
     Indication: Myasthenia gravis
     Dosage: 500MG/50ML AND 100MG/10ML
     Route: 041
     Dates: start: 20221220
  2. RITUXAN [Suspect]
     Active Substance: RITUXIMAB
     Indication: Myasthenia gravis
  3. ACETAMINOPHEN [Concomitant]
     Active Substance: ACETAMINOPHEN
     Dosage: 2 TABLETS BY MOUTH 30 MINUTES PRIOR TO EACH INFUSION.
     Route: 048
  4. DIPHENHYDRAMINE [Concomitant]
     Active Substance: DIPHENHYDRAMINE
     Dosage: SLOW IV PUSH PRIOR TO EACH INFUSION
     Route: 042
  5. SOLU-CORTEF [Concomitant]
     Active Substance: HYDROCORTISONE SODIUM SUCCINATE
     Dosage: PUSH PRIOR TO EACH INFUSION
     Route: 042

REACTIONS (2)
  - Movement disorder [Recovered/Resolved]
  - Off label use [Unknown]

NARRATIVE: CASE EVENT DATE: 20221226
